FAERS Safety Report 13024396 (Version 2)
Quarter: 2016Q4

REPORT INFORMATION
  Report Type: Spontaneous
  Country: US (occurrence: US)
  Receive Date: 20161213
  Receipt Date: 20161222
  Transmission Date: 20170207
  Serious: Yes (Hospitalization, Other)
  Sender: FDA-Public Use
  Company Number: US-SUNOVION-2016SUN003103

PATIENT
  Age: 29 Year
  Sex: Male

DRUGS (5)
  1. BUSPIRONE [Suspect]
     Active Substance: BUSPIRONE HYDROCHLORIDE
     Indication: ANXIETY
  2. CORICIDIN HBP COUGH AND COLD [Suspect]
     Active Substance: CHLORPHENIRAMINE MALEATE\DEXTROMETHORPHAN HYDROBROMIDE
     Dosage: 32 DF, UNK
  3. DULOXETINE. [Suspect]
     Active Substance: DULOXETINE
     Indication: ANXIETY
  4. DEXTROMETHORPHAN [Suspect]
     Active Substance: DEXTROMETHORPHAN
  5. LATUDA [Suspect]
     Active Substance: LURASIDONE HYDROCHLORIDE
     Route: 048

REACTIONS (15)
  - Psychotic disorder [Unknown]
  - Agitation [Recovered/Resolved]
  - Hypertension [Recovered/Resolved]
  - Anxiety [Unknown]
  - Clonus [Recovered/Resolved]
  - Aggression [Unknown]
  - Tremor [Recovered/Resolved]
  - Tachycardia [Recovered/Resolved]
  - Serotonin syndrome [Recovered/Resolved]
  - Muscle rigidity [Unknown]
  - Disorientation [Recovered/Resolved]
  - Confusional state [Recovered/Resolved]
  - Intentional self-injury [Unknown]
  - Hyperhidrosis [Recovered/Resolved]
  - Drug administration error [Unknown]
